FAERS Safety Report 24067528 (Version 1)
Quarter: 2024Q3

REPORT INFORMATION
  Report Type: Spontaneous
  Country: CN (occurrence: CN)
  Receive Date: 20240710
  Receipt Date: 20240710
  Transmission Date: 20241017
  Serious: Yes (Life-Threatening, Hospitalization, Disabling)
  Sender: ROCHE
  Company Number: CN-BoehringerIngelheim-2024-BI-037022

PATIENT
  Age: 83 Year
  Sex: Male

DRUGS (1)
  1. ALTEPLASE [Suspect]
     Active Substance: ALTEPLASE
     Indication: Cerebral infarction
     Route: 042
     Dates: start: 20240505, end: 20240505

REACTIONS (3)
  - Gastrointestinal haemorrhage [Unknown]
  - Dysphoria [Unknown]
  - Off label use [Unknown]

NARRATIVE: CASE EVENT DATE: 20240505
